FAERS Safety Report 8537623 (Version 2)
Quarter: 2012Q4

REPORT INFORMATION
  Report Type: Report from Study
  Country: GR (occurrence: GR)
  Receive Date: 20120501
  Receipt Date: 20121011
  Transmission Date: 20130627
  Serious: Yes (Hospitalization)
  Sender: FDA-Public Use
  Company Number: GR-UCBSA-056006

PATIENT
  Age: 67 Year
  Sex: Female

DRUGS (7)
  1. CIMZIA [Suspect]
     Indication: RHEUMATOID ARTHRITIS
     Dates: start: 20111111
  2. METHOTREXATE [Concomitant]
     Indication: RHEUMATOID ARTHRITIS
     Route: 048
     Dates: start: 20110611
  3. PREZOLON [Concomitant]
     Indication: RHEUMATOID ARTHRITIS
     Route: 048
     Dates: start: 20090611
  4. DANYCOLIN [Concomitant]
     Indication: PROPHYLACTIC CHEMOTHERAPY
     Route: 048
     Dates: start: 20111010
  5. NEVROBION [Concomitant]
     Indication: PROPHYLACTIC CHEMOTHERAPY
     Route: 048
  6. LADOSE [Concomitant]
     Indication: DEPRESSION
     Route: 048
  7. IDEOS [Concomitant]
     Indication: OSTEOPOROSIS
     Dosage: DOSE PER INTAKE: 1
     Route: 048

REACTIONS (2)
  - Coordination abnormal [Recovered/Resolved]
  - Cervical myelopathy [Unknown]
